FAERS Safety Report 4953275-4 (Version None)
Quarter: 2006Q1

REPORT INFORMATION
  Report Type: 
  Country: None (occurrence: None)
  Receive Date: 20060324
  Receipt Date: 20060314
  Transmission Date: 20060701
  Serious: Yes (Hospitalization)
  Sender: FDA-Public Use
  Company Number: IE-BRISTOL-MYERS SQUIBB COMPANY-13315031

PATIENT
  Age: 77 Year
  Sex: Male

DRUGS (2)
  1. LIPOSTAT TABS 10 MG [Suspect]
     Route: 048
     Dates: start: 20050311, end: 20060304
  2. SYMBICORT [Concomitant]
     Route: 055

REACTIONS (2)
  - HEMIPARESIS [None]
  - PANCYTOPENIA [None]
